FAERS Safety Report 19608910 (Version 2)
Quarter: 2021Q3

REPORT INFORMATION
  Report Type: Spontaneous
  Country: JP (occurrence: JP)
  Receive Date: 20210726
  Receipt Date: 20210826
  Transmission Date: 20211014
  Serious: Yes (Life-Threatening, Hospitalization, Other)
  Sender: FDA-Public Use
  Company Number: JP-ASTELLAS-2021JP014510

PATIENT
  Age: 10 Decade
  Sex: Female

DRUGS (1)
  1. BETANIS [Suspect]
     Active Substance: MIRABEGRON
     Indication: HYPERTONIC BLADDER
     Route: 048
     Dates: end: 20210702

REACTIONS (3)
  - Blood pressure decreased [Recovered/Resolved]
  - Urinary tract infection [Recovered/Resolved]
  - Septic shock [Recovered/Resolved]

NARRATIVE: CASE EVENT DATE: 20210702
